FAERS Safety Report 6669595-1 (Version None)
Quarter: 2010Q2

REPORT INFORMATION
  Report Type: 
  Country: None (occurrence: None)
  Receive Date: 20100406
  Receipt Date: 20100326
  Transmission Date: 20101027
  Serious: Yes (Other)
  Sender: FDA-Public Use
  Company Number: US-PFIZER INC-2010039905

PATIENT
  Sex: Female

DRUGS (2)
  1. DETROL [Suspect]
     Dosage: UNK
  2. OXYBUTYNIN [Suspect]
     Dosage: UNK

REACTIONS (2)
  - MULTIPLE SCLEROSIS [None]
  - URINARY INCONTINENCE [None]
